FAERS Safety Report 6344694-2 (Version None)
Quarter: 2009Q3

REPORT INFORMATION
  Report Type: 
  Country: None (occurrence: None)
  Receive Date: 20090821
  Receipt Date: 20090511
  Transmission Date: 20100115
  Serious: No
  Sender: FDA-Public Use
  Company Number: 8046080

PATIENT
  Age: 59 Year
  Sex: Female
  Weight: 53.5 kg

DRUGS (8)
  1. CIMZIA [Suspect]
     Indication: CROHN'S DISEASE
     Dosage: 400 MG SC
     Route: 058
  2. CITALOPRAM HYDROBROMIDE [Concomitant]
  3. LEVOTHYROXINE SODIUM [Concomitant]
  4. VIOKASE [Concomitant]
  5. PROBIOTICA [Concomitant]
  6. ZINC [Concomitant]
  7. VITAMIN E [Concomitant]
  8. PRILOSEC [Concomitant]

REACTIONS (3)
  - DIARRHOEA [None]
  - PYREXIA [None]
  - RHINORRHOEA [None]
